FAERS Safety Report 4280162-X (Version None)
Quarter: 2004Q1

REPORT INFORMATION
  Report Type: 
  Country: None (occurrence: None)
  Receive Date: 20040126
  Receipt Date: 20040120
  Transmission Date: 20041129
  Serious: Yes (Other)
  Sender: FDA-Public Use
  Company Number: 2004-01-1232

PATIENT
  Age: 44 Year
  Sex: Female

DRUGS (3)
  1. NASONEX [Suspect]
     Indication: RHINITIS ALLERGIC
     Dosage: NASAL SPRAY
     Route: 045
     Dates: start: 20010101, end: 20040109
  2. ATARAX [Concomitant]
  3. CLARITIN-D [Concomitant]

REACTIONS (1)
  - CATARACT [None]
